FAERS Safety Report 24710403 (Version 2)
Quarter: 2024Q4

REPORT INFORMATION
  Report Type: Spontaneous
  Country: BR (occurrence: BR)
  Receive Date: 20241209
  Receipt Date: 20241211
  Transmission Date: 20250114
  Serious: Yes (Other)
  Sender: Haleon PLC
  Company Number: BR-002147023-NVSC2024BR087438

PATIENT
  Age: 79 Year
  Sex: Male

DRUGS (3)
  1. DICLOFENAC SODIUM [Suspect]
     Active Substance: DICLOFENAC SODIUM
     Indication: Product used for unknown indication
     Dosage: UNK
     Route: 065
  2. CODEINE PHOSPHATE\DICLOFENAC SODIUM [Suspect]
     Active Substance: CODEINE PHOSPHATE\DICLOFENAC SODIUM
     Indication: Product used for unknown indication
     Dosage: UNK
     Route: 065
  3. CODEINE [Suspect]
     Active Substance: CODEINE
     Indication: Product used for unknown indication
     Route: 065

REACTIONS (13)
  - Functional gastrointestinal disorder [Unknown]
  - Neuralgia [Unknown]
  - Joint range of motion decreased [Not Recovered/Not Resolved]
  - Product supply issue [Unknown]
  - Malaise [Not Recovered/Not Resolved]
  - Limb discomfort [Unknown]
  - Burning sensation [Unknown]
  - Asthenia [Unknown]
  - Pain in extremity [Unknown]
  - Pain [Recovered/Resolved]
  - Intervertebral disc protrusion [Recovering/Resolving]
  - Illness [Unknown]
  - Nausea [Unknown]
